FAERS Safety Report 17010227 (Version 1)
Quarter: 2019Q4

REPORT INFORMATION
  Report Type: Report from Study
  Country: UA (occurrence: UA)
  Receive Date: 20191108
  Receipt Date: 20191108
  Transmission Date: 20200122
  Serious: Yes (Death, Other)
  Sender: FDA-Public Use
  Company Number: UA-SEATTLE GENETICS-2019SGN01842

PATIENT
  Age: 37 Year
  Sex: Male

DRUGS (1)
  1. BRENTUXIMAB VEDOTIN-MPI [Suspect]
     Active Substance: BRENTUXIMAB VEDOTIN
     Indication: HODGKIN^S DISEASE
     Dosage: UNK
     Route: 042
     Dates: start: 20190409

REACTIONS (2)
  - Death [Fatal]
  - Gait inability [Recovering/Resolving]

NARRATIVE: CASE EVENT DATE: 20190710
